FAERS Safety Report 5950902-X (Version None)
Quarter: 2008Q4

REPORT INFORMATION
  Report Type: 
  Country: None (occurrence: None)
  Receive Date: 20081112
  Receipt Date: 20081104
  Transmission Date: 20090506
  Serious: Yes (Death, Life-Threatening, Hospitalization, Other)
  Sender: FDA-Public Use
  Company Number: FR-PFIZER INC-2006139010

PATIENT
  Sex: Male
  Weight: 103 kg

DRUGS (9)
  1. GENOTONORM [Suspect]
     Indication: HYPOPITUITARISM
     Dosage: DAILY DOSE:.3MG-FREQ:DAILY
     Route: 058
     Dates: start: 20031202, end: 20060101
  2. LEVOTHYROX [Concomitant]
  3. CARDENSIEL [Concomitant]
  4. TOCO [Concomitant]
  5. HYDROCORTISONE [Concomitant]
  6. LIPANTHYL [Concomitant]
  7. URSOLVAN-200 [Concomitant]
  8. APROVEL [Concomitant]
  9. EZETROL [Concomitant]

REACTIONS (1)
  - COLON CANCER METASTATIC [None]
